FAERS Safety Report 24232465 (Version 1)
Quarter: 2024Q3

REPORT INFORMATION
  Report Type: Report from Study
  Country: US (occurrence: US)
  Receive Date: 20240821
  Receipt Date: 20240821
  Transmission Date: 20241017
  Serious: Yes (Other)
  Sender: PAREXEL
  Company Number: US-Stemline Therapeutics, Inc.-2024ST003225

PATIENT

DRUGS (2)
  1. ORSERDU [Suspect]
     Active Substance: ELACESTRANT
     Indication: Product used for unknown indication
     Dosage: 345 MG, DAILY
     Route: 048
     Dates: start: 20231101, end: 202401
  2. ORSERDU [Suspect]
     Active Substance: ELACESTRANT
     Dosage: UNK
     Route: 065
     Dates: start: 202402

REACTIONS (3)
  - Gastrointestinal haemorrhage [Unknown]
  - Drug intolerance [Not Recovered/Not Resolved]
  - Nausea [Not Recovered/Not Resolved]

NARRATIVE: CASE EVENT DATE: 20240301
